FAERS Safety Report 19134216 (Version 1)
Quarter: 2021Q2

REPORT INFORMATION
  Report Type: Report from Study
  Country: US (occurrence: US)
  Receive Date: 20210414
  Receipt Date: 20210414
  Transmission Date: 20210717
  Serious: Yes (Hospitalization, Other)
  Sender: FDA-Public Use
  Company Number: US-SA-2021SA114512

PATIENT
  Age: 81 Year
  Sex: Male

DRUGS (14)
  1. ONDANSETRON [Suspect]
     Active Substance: ONDANSETRON
     Indication: NAUSEA
     Dosage: 8 MG, PRN
     Route: 048
     Dates: start: 20210216, end: 20210224
  2. COZAAR [Concomitant]
     Active Substance: LOSARTAN POTASSIUM
     Dosage: UNK
     Route: 065
     Dates: start: 20180727, end: 20210224
  3. OXALIPLATIN. [Suspect]
     Active Substance: OXALIPLATIN
     Indication: OESOPHAGEAL ADENOCARCINOMA
     Dosage: 250 MG (130 MG/M2), Q3W
     Route: 042
     Dates: start: 20210209, end: 20210209
  4. TOPROL XL [Concomitant]
     Active Substance: METOPROLOL SUCCINATE
     Dosage: UNK
     Route: 065
     Dates: start: 20210227
  5. TISLELIZUMAB [Suspect]
     Active Substance: TISLELIZUMAB
     Indication: OESOPHAGEAL ADENOCARCINOMA
     Dosage: 200 MG, Q3W
     Route: 042
     Dates: start: 20210209, end: 20210209
  6. PRILOSEC [Concomitant]
     Active Substance: OMEPRAZOLE MAGNESIUM
     Dosage: UNK
     Route: 065
     Dates: start: 20201019, end: 20210224
  7. CHONDROITIN PLUS GLUCOSAMIN [Concomitant]
     Dosage: UNK
     Route: 065
     Dates: start: 2018, end: 20210224
  8. COMPAZINE [Concomitant]
     Active Substance: PROCHLORPERAZINE MALEATE
     Dosage: UNK
     Route: 065
     Dates: start: 20210216, end: 20210224
  9. CAPECITABINE. [Suspect]
     Active Substance: CAPECITABINE
     Indication: OESOPHAGEAL ADENOCARCINOMA
     Dosage: 2000 MG, Q3W
     Route: 048
     Dates: start: 20210209, end: 20210209
  10. ELIQUIS [Concomitant]
     Active Substance: APIXABAN
     Dosage: UNK
     Route: 065
     Dates: start: 20201215, end: 20210225
  11. NORVASC [Concomitant]
     Active Substance: AMLODIPINE BESYLATE
     Dosage: UNK
     Route: 065
     Dates: start: 20180920, end: 20210224
  12. TOPROL XL [Concomitant]
     Active Substance: METOPROLOL SUCCINATE
     Dosage: UNK
     Route: 065
     Dates: start: 20180810, end: 20210224
  13. ELIQUIS [Concomitant]
     Active Substance: APIXABAN
     Dosage: 2.5 MG, BID
     Route: 065
     Dates: start: 20210228
  14. IMODIUM [Concomitant]
     Active Substance: LOPERAMIDE HYDROCHLORIDE
     Dosage: UNK
     Route: 065
     Dates: start: 20210216, end: 20210224

REACTIONS (21)
  - Acute kidney injury [Recovered/Resolved]
  - Oral discomfort [Unknown]
  - Blood lactic acid increased [Unknown]
  - Hypokalaemia [Unknown]
  - Diarrhoea [Not Recovered/Not Resolved]
  - Troponin increased [Unknown]
  - Dyspnoea [Unknown]
  - Blood creatinine increased [Unknown]
  - Tachycardia [Unknown]
  - Fibrin D dimer increased [Unknown]
  - Decreased appetite [Unknown]
  - Hyponatraemia [Unknown]
  - Weight decreased [Unknown]
  - Encephalopathy [Unknown]
  - Hypotension [Not Recovered/Not Resolved]
  - Dysphagia [Unknown]
  - Fatigue [Unknown]
  - Asthenia [Unknown]
  - Erythema [Unknown]
  - Vomiting [Unknown]
  - Hypoxia [Unknown]

NARRATIVE: CASE EVENT DATE: 20210222
